FAERS Safety Report 5942825-7 (Version None)
Quarter: 2008Q4

REPORT INFORMATION
  Report Type: 
  Country: None (occurrence: None)
  Receive Date: 20081106
  Receipt Date: 20081104
  Transmission Date: 20090506
  Serious: Yes (Hospitalization)
  Sender: FDA-Public Use
  Company Number: DE-WYE-G02512908

PATIENT
  Sex: Male
  Weight: 100 kg

DRUGS (3)
  1. TREVILOR RETARD [Suspect]
     Dosage: 5 CAPSULES (OVERDOSE AMOUNT 375 MG)
     Route: 048
     Dates: start: 20081104, end: 20081104
  2. DIPIPERON [Suspect]
     Dosage: 10 TABLETS (OVERDOSE AMOUNT 400 MG)
     Route: 048
     Dates: start: 20081104, end: 20081104
  3. BETADORM-A [Suspect]
     Dosage: 14 TABLETS (OVERDOSE AMOUNT 700 MG)
     Route: 048
     Dates: start: 20081104, end: 20081104

REACTIONS (5)
  - FATIGUE [None]
  - ILEUS PARALYTIC [None]
  - INTENTIONAL OVERDOSE [None]
  - SUICIDE ATTEMPT [None]
  - TACHYCARDIA [None]
